FAERS Safety Report 8531566-8 (Version None)
Quarter: 2012Q3

REPORT INFORMATION
  Report Type: 
  Country: None (occurrence: None)
  Receive Date: 20120723
  Receipt Date: 20120712
  Transmission Date: 20120928
  Serious: Yes (Other)
  Sender: FDA-Public Use
  Company Number: US-JNJFOC-20120708763

PATIENT
  Age: 84 Year
  Sex: Female
  Weight: 72.58 kg

DRUGS (14)
  1. GLYBURIDE [Concomitant]
     Indication: DIABETES MELLITUS
     Dosage: YEARS AGO
     Route: 065
  2. SIMVASTATIN [Concomitant]
     Indication: BLOOD CHOLESTEROL INCREASED
     Dosage: SINCE YEARS AGO
     Route: 065
  3. IMODIUM A-D [Suspect]
     Indication: DIARRHOEA
     Route: 048
     Dates: start: 20120708
  4. NIFEDIAC [Concomitant]
     Indication: HYPERTENSION
     Dosage: YEARS AGO
     Route: 065
  5. FENOFIBRATE [Concomitant]
     Indication: HYPERLIPIDAEMIA
     Dosage: YEARS AGO
     Route: 065
  6. ERYTHROMYCIN [Concomitant]
     Indication: ANTI-INFECTIVE THERAPY
     Dosage: FOR RIGHT EYE SINCE 1 YEAR AGO
     Route: 047
  7. IMODIUM A-D [Suspect]
     Route: 048
     Dates: start: 20120711
  8. DIGOXIN [Concomitant]
     Indication: ARRHYTHMIA
     Dosage: YEARS AGO
     Route: 065
  9. LANTUS [Concomitant]
     Indication: DIABETES MELLITUS
     Dosage: 13-15 U DAILY, YEARS AGO
     Route: 065
  10. METFORMIN HYDROCHLORIDE [Concomitant]
     Indication: DIABETES MELLITUS
     Dosage: SINCE YEARS AGO
     Route: 065
  11. WARFARIN SODIUM [Concomitant]
     Dosage: 1 YEAR AGO, ON MONDAY, TUESDAY, THURSDAY, FRIDAY AND SUNDAY.
     Route: 065
  12. DORZOLAMIDE [Concomitant]
     Indication: GLAUCOMA
     Dosage: FOR RIGHT EYE SINCE 6 YEARS AGO
     Route: 065
  13. SYNTHROID [Concomitant]
     Indication: HYPOTHYROIDISM
     Dosage: YEARS AGO
     Route: 065
  14. WARFARIN SODIUM [Concomitant]
     Indication: ANTICOAGULANT THERAPY
     Dosage: ON WEDNESDAY AND SUNDAY SINCE 1 YEAR AGO
     Route: 065

REACTIONS (2)
  - POLLAKIURIA [None]
  - DYSURIA [None]
